FAERS Safety Report 8927788 (Version 1)
Quarter: 2012Q4

REPORT INFORMATION
  Report Type: 
  Country: DK (occurrence: GB)
  Receive Date: 20121127
  Receipt Date: 20121127
  Transmission Date: 20130627
  Serious: Yes (Hospitalization)
  Sender: FDA-Public Use
  Company Number: GB-FRI-1000040609

PATIENT
  Age: 77 Year
  Sex: Female

DRUGS (4)
  1. CITALOPRAM [Suspect]
     Indication: DEPRESSION
     Dosage: 20 mg
     Route: 048
     Dates: start: 201208, end: 20120928
  2. PARACETAMOL [Concomitant]
  3. ASPIRIN [Concomitant]
  4. FENOFIBRATE [Concomitant]

REACTIONS (3)
  - Convulsion [Recovered/Resolved with Sequelae]
  - Headache [Unknown]
  - Balance disorder [Unknown]
